FAERS Safety Report 7634126-6 (Version None)
Quarter: 2011Q3

REPORT INFORMATION
  Report Type: 
  Country: None (occurrence: None)
  Receive Date: 20110725
  Receipt Date: 20110725
  Transmission Date: 20111222
  Serious: No
  Sender: FDA-Public Use
  Company Number: US-PFIZER INC-2011168293

PATIENT
  Sex: Female

DRUGS (2)
  1. CHANTIX [Suspect]
     Dosage: UNK
     Route: 048
     Dates: start: 20110701
  2. CHANTIX [Suspect]
     Dosage: UNK
     Route: 048
     Dates: start: 20080101

REACTIONS (1)
  - ABNORMAL DREAMS [None]
